FAERS Safety Report 7482790-7 (Version None)
Quarter: 2011Q2

REPORT INFORMATION
  Report Type: 
  Country: None (occurrence: None)
  Receive Date: 20110516
  Receipt Date: 20110510
  Transmission Date: 20111010
  Serious: Yes (Death, Hospitalization)
  Sender: FDA-Public Use
  Company Number: US-SANOFI-AVENTIS-2011SA029364

PATIENT
  Age: 95 Year
  Sex: Male

DRUGS (3)
  1. ASPIRIN [Suspect]
     Route: 065
  2. PLAVIX [Suspect]
     Route: 065
  3. DABIGATRAN ETEXILATE [Suspect]
     Route: 048

REACTIONS (2)
  - DEATH [None]
  - SUBDURAL HAEMATOMA [None]
